FAERS Safety Report 24364733 (Version 2)
Quarter: 2024Q3

REPORT INFORMATION
  Report Type: Spontaneous
  Country: JP (occurrence: JP)
  Receive Date: 20240926
  Receipt Date: 20240930
  Transmission Date: 20241016
  Serious: Yes (Hospitalization)
  Sender: JOHNSON AND JOHNSON
  Company Number: JP-JNJFOC-20240964158

PATIENT
  Age: 70 Year
  Sex: Male
  Weight: 72.6 kg

DRUGS (23)
  1. OPSUMIT [Suspect]
     Active Substance: MACITENTAN
     Indication: Pulmonary arterial hypertension
     Route: 048
  2. SELEXIPAG [Suspect]
     Active Substance: SELEXIPAG
     Indication: Pulmonary arterial hypertension
     Dosage: 0.4 MG (0.2 MG/12 HOURS)
     Route: 048
     Dates: start: 20170519, end: 20170601
  3. SELEXIPAG [Suspect]
     Active Substance: SELEXIPAG
     Indication: Pulmonary arterial hypertension
     Dosage: (0.4 MG/12 HOURS)
     Route: 048
     Dates: start: 20170602, end: 20170615
  4. SELEXIPAG [Suspect]
     Active Substance: SELEXIPAG
     Dosage: (0.6 MG/12 HOURS)
     Route: 048
     Dates: start: 20170616, end: 20170629
  5. SELEXIPAG [Suspect]
     Active Substance: SELEXIPAG
     Dosage: (0.8 MG/12 HOURS)
     Route: 048
     Dates: start: 20170630, end: 20171222
  6. SELEXIPAG [Suspect]
     Active Substance: SELEXIPAG
     Dosage: (/12 HOURS)
     Route: 048
     Dates: start: 20171223, end: 20180119
  7. SELEXIPAG [Suspect]
     Active Substance: SELEXIPAG
     Dosage: (1.0 MG/12 HOURS)
     Route: 048
     Dates: start: 20180120, end: 20180216
  8. SELEXIPAG [Suspect]
     Active Substance: SELEXIPAG
     Dosage: (/12 HOURS)
     Route: 048
     Dates: start: 20180217, end: 20180316
  9. SELEXIPAG [Suspect]
     Active Substance: SELEXIPAG
     Dosage: (1.2 MG/12 HOURS)
     Route: 048
     Dates: start: 20180317, end: 20180413
  10. SELEXIPAG [Suspect]
     Active Substance: SELEXIPAG
     Dosage: (/12 HOURS)
     Route: 048
     Dates: start: 20180414, end: 20180511
  11. SELEXIPAG [Suspect]
     Active Substance: SELEXIPAG
     Dosage: (1.4 MG/12 HOURS)
     Route: 048
     Dates: start: 20180512, end: 20180525
  12. SELEXIPAG [Suspect]
     Active Substance: SELEXIPAG
     Dosage: (/12 HOURS)
     Route: 048
     Dates: start: 20180526, end: 20180608
  13. SELEXIPAG [Suspect]
     Active Substance: SELEXIPAG
     Dosage: (1.6 MG/12 HOURS)
     Route: 048
     Dates: start: 20180609
  14. ADCIRCA [Concomitant]
     Active Substance: TADALAFIL
     Indication: Pulmonary arterial hypertension
     Route: 048
  15. LANSOPRAZOLE [Concomitant]
     Active Substance: LANSOPRAZOLE
     Indication: Prophylaxis
  16. FEBUXOSTAT [Concomitant]
     Active Substance: FEBUXOSTAT
     Indication: Prophylaxis
  17. TOLVAPTAN [Concomitant]
     Active Substance: TOLVAPTAN
     Indication: Cardiac failure
  18. WARFARIN POTASSIUM [Concomitant]
     Active Substance: WARFARIN POTASSIUM
     Indication: Prophylaxis
  19. SODIUM FERROUS CITRATE [Concomitant]
     Active Substance: SODIUM FERROUS CITRATE
     Indication: Prophylaxis
  20. FUROSEMIDE [Concomitant]
     Active Substance: FUROSEMIDE
     Indication: Cardiac failure
  21. ESZOPICLONE [Concomitant]
     Active Substance: ESZOPICLONE
     Indication: Prophylaxis
  22. NIFEDIPINE [Concomitant]
     Active Substance: NIFEDIPINE
     Indication: Prophylaxis
  23. BROTIZOLAM [Concomitant]
     Active Substance: BROTIZOLAM
     Indication: Prophylaxis

REACTIONS (1)
  - Cardiac failure [Not Recovered/Not Resolved]

NARRATIVE: CASE EVENT DATE: 20240911
